FAERS Safety Report 10040774 (Version 3)
Quarter: 2014Q2

REPORT INFORMATION
  Report Type: Report from Study
  Country: NL (occurrence: NL)
  Receive Date: 20140327
  Receipt Date: 20140418
  Transmission Date: 20141212
  Serious: Yes (Other)
  Sender: FDA-Public Use
  Company Number: PHHY2014NL027842

PATIENT
  Sex: Female

DRUGS (15)
  1. ACLASTA [Suspect]
     Indication: OSTEOPOROSIS
     Dosage: 5 MG, PER 52 WEEKS
     Route: 042
     Dates: start: 20120224
  2. ACLASTA [Suspect]
     Dosage: 5 MG, PER 52 WEEKS
     Route: 042
     Dates: start: 20130222
  3. ACLASTA [Suspect]
     Dosage: 5 MG PER YEAR
     Route: 042
     Dates: start: 201401, end: 201401
  4. DRY EYE GEL [Concomitant]
     Dosage: UNK UKN, UNK
  5. MIMPARA [Concomitant]
     Dosage: 30 MG, 1 DAY D 1
  6. VIT D [Concomitant]
     Dosage: 0.2 ML, 1X PER WEEK
  7. NEORECORMON [Concomitant]
     Dosage: 1X PER WEEK
  8. FUROSEMIDE [Concomitant]
     Dosage: 40 MG, 1DD1
  9. METOPROLOL [Concomitant]
     Dosage: 50 MG, 1DD1
  10. NIFEDIPINE [Concomitant]
     Dosage: 30 MG, 1DD1
  11. OXYCONTIN [Concomitant]
     Dosage: 10 MG, 2DD1
  12. PANTOPRAZOLE [Concomitant]
     Dosage: 40 MG, 1DD1
  13. PREDNISONE [Concomitant]
     Dosage: 7.5 MG, 1DD1
  14. RAPAMUNE [Concomitant]
     Dosage: 1 MG, 1DD1
  15. SPIRONOLACTONE [Concomitant]
     Dosage: 12.5 MG, 1DD1

REACTIONS (7)
  - Multiple fractures [Unknown]
  - Spinal fracture [Unknown]
  - Pain [Unknown]
  - Bone density decreased [Unknown]
  - Renal disorder [Unknown]
  - General physical condition abnormal [Unknown]
  - Drug ineffective [Not Recovered/Not Resolved]
